FAERS Safety Report 12269982 (Version 12)
Quarter: 2019Q3

REPORT INFORMATION
  Report Type: Report from Study
  Country: CA (occurrence: CA)
  Receive Date: 20160415
  Receipt Date: 20190722
  Transmission Date: 20191004
  Serious: Yes (Other)
  Sender: FDA-Public Use
  Company Number: CA-ROCHE-1733450

PATIENT
  Age: 61 Year
  Sex: Male
  Weight: 81 kg

DRUGS (7)
  1. ESBRIET [Suspect]
     Active Substance: PIRFENIDONE
     Route: 048
     Dates: start: 20160217
  2. VENTOLIN [Concomitant]
     Active Substance: ALBUTEROL SULFATE
  3. ESBRIET [Suspect]
     Active Substance: PIRFENIDONE
     Route: 048
     Dates: start: 2017
  4. ATROVAN [Concomitant]
  5. AVAMYS [Concomitant]
     Active Substance: FLUTICASONE FUROATE
  6. ESBRIET [Suspect]
     Active Substance: PIRFENIDONE
     Indication: IDIOPATHIC PULMONARY FIBROSIS
     Route: 048
     Dates: start: 20160210
  7. ESBRIET [Suspect]
     Active Substance: PIRFENIDONE
     Route: 048
     Dates: start: 20160224

REACTIONS (9)
  - Dyspnoea [Recovering/Resolving]
  - Libido decreased [Not Recovered/Not Resolved]
  - Abdominal discomfort [Recovering/Resolving]
  - Dyspepsia [Recovering/Resolving]
  - Drug hypersensitivity [Not Recovered/Not Resolved]
  - Pulmonary function test abnormal [Unknown]
  - Weight decreased [Not Recovered/Not Resolved]
  - Wheezing [Recovered/Resolved]
  - Chest discomfort [Unknown]

NARRATIVE: CASE EVENT DATE: 20161220
